FAERS Safety Report 10308791 (Version 1)
Quarter: 2014Q3

REPORT INFORMATION
  Report Type: Spontaneous
  Country: NO (occurrence: None)
  Receive Date: 20140714
  Receipt Date: 20140714
  Transmission Date: 20150326
  Serious: Yes (Death)
  Sender: FDA-Public Use
  Company Number: NO2014K2525SPO

PATIENT
  Age: 70 Year
  Sex: Male

DRUGS (15)
  1. IBUX (IBUPROFEN) [Concomitant]
  2. OCTAGAM (IMMUNOGLOBULINS, NORMAL HUMAN, FOR INTRAVASCULAR ADM.) [Concomitant]
  3. PREDNISOLON [Suspect]
     Active Substance: PREDNISOLONE
     Route: 048
     Dates: start: 20140429
  4. METHOTREXATE [Suspect]
     Active Substance: METHOTREXATE
     Dates: start: 20010307, end: 20140501
  5. ALBYLE-E (ACETYLSALICYLIC ACID) [Concomitant]
  6. SOMAC (PANTOPRAZOLE) [Concomitant]
  7. CALCIGRAN FORTE (CALCIUM COMBINATIONS WITH VITAMIN D AND/OR OTHER DRUGS) [Concomitant]
  8. LANSOPRAZOLE GENERIC (LANSOPRAZOLE) UNKNOWN [Suspect]
     Active Substance: LANSOPRAZOLE
     Indication: PROPHYLAXIS AGAINST GASTROINTESTINAL ULCER
     Dosage: CHANGED TO ESOMEPRAZOLE
     Route: 048
     Dates: start: 20140425, end: 20140509
  9. AMIODARONE HYDROCHLORIDE. [Suspect]
     Active Substance: AMIODARONE HYDROCHLORIDE
     Route: 048
  10. FOLSYRE NAF [Suspect]
     Active Substance: FOLIC ACID
  11. NEXIUM [Concomitant]
     Active Substance: ESOMEPRAZOLE MAGNESIUM
  12. FLUCONAZOLE. [Suspect]
     Active Substance: FLUCONAZOLE
     Indication: FUNGAL INFECTION
     Route: 048
     Dates: start: 20140411, end: 20140508
  13. MEDROL (METHYLPREDNISOLONE) [Concomitant]
     Indication: RHEUMATOID ARTHRITIS
     Dosage: HIGH-DOSE: UNKNOWN
     Dates: start: 20140426, end: 20140428
  14. MEDROL (METHYLPREDNISOLONE) [Concomitant]
     Indication: RHEUMATOID ARTHRITIS
     Route: 048
     Dates: start: 201312, end: 20140426
  15. REMERON (MIRTAZAPINE) [Concomitant]

REACTIONS (7)
  - Pneumocystis jirovecii infection [None]
  - Drug interaction [None]
  - Drug level increased [None]
  - Asthenia [None]
  - Oral candidiasis [None]
  - Immunosuppression [None]
  - Pancytopenia [None]

NARRATIVE: CASE EVENT DATE: 201404
